FAERS Safety Report 8575277-1 (Version None)
Quarter: 2012Q3

REPORT INFORMATION
  Report Type: 
  Country: None (occurrence: None)
  Receive Date: 20120807
  Receipt Date: 20120801
  Transmission Date: 20120928
  Serious: Yes (Other)
  Sender: FDA-Public Use
  Company Number: US-BAYER-2012-078674

PATIENT
  Age: 42 Year
  Sex: Female

DRUGS (4)
  1. NORVASC [Concomitant]
  2. GABAPENTIN [Concomitant]
     Dosage: 300 MG, TID
  3. BETASERON [Suspect]
     Indication: MULTIPLE SCLEROSIS
     Dosage: 8 MIU, QOD
     Route: 058
     Dates: start: 20120619
  4. IBUPROFEN [Concomitant]

REACTIONS (4)
  - SPEECH DISORDER [None]
  - DIZZINESS [None]
  - FEAR [None]
  - CONVULSION [None]
